FAERS Safety Report 9777663 (Version 1)
Quarter: 2013Q4

REPORT INFORMATION
  Report Type: Spontaneous
  Country: FR (occurrence: FR)
  Receive Date: 20131223
  Receipt Date: 20131223
  Transmission Date: 20140711
  Serious: Yes (Hospitalization)
  Sender: FDA-Public Use
  Company Number: FR-ASTRAZENECA-2013SE92093

PATIENT
  Age: 8923 Day
  Sex: Female

DRUGS (4)
  1. INEXIUM [Suspect]
     Route: 048
     Dates: start: 20131015, end: 20131028
  2. COUMADINE [Suspect]
     Route: 065
     Dates: start: 20131014, end: 20131028
  3. SOLUMEDROL [Suspect]
     Route: 065
     Dates: start: 20131007
  4. CLAFORAN [Suspect]
     Indication: PNEUMONIA
     Route: 065
     Dates: start: 20131006

REACTIONS (2)
  - Toxic skin eruption [Recovered/Resolved]
  - Eosinophilia [Recovered/Resolved]
